FAERS Safety Report 19890559 (Version 1)
Quarter: 2021Q3

REPORT INFORMATION
  Report Type: Spontaneous
  Country: MY (occurrence: MY)
  Receive Date: 20210928
  Receipt Date: 20210928
  Transmission Date: 20211014
  Serious: Yes (Other)
  Sender: FDA-Public Use
  Company Number: NVSC2021MY213518

PATIENT
  Age: 67 Year
  Sex: Female

DRUGS (4)
  1. TRAMADOL. [Concomitant]
     Active Substance: TRAMADOL
     Indication: PAIN
     Dosage: 50 MG, TID
     Route: 065
  2. LETROZOLE. [Suspect]
     Active Substance: LETROZOLE
     Indication: INVASIVE BREAST CARCINOMA
     Dosage: UNK
     Route: 065
  3. RIBOCICLIB. [Suspect]
     Active Substance: RIBOCICLIB
     Indication: INVASIVE BREAST CARCINOMA
     Dosage: UNK
     Route: 065
  4. ARCOXIA [Concomitant]
     Active Substance: ETORICOXIB
     Indication: PAIN
     Dosage: 90 MG, QD
     Route: 065

REACTIONS (12)
  - Neutropenia [Unknown]
  - Arthralgia [Unknown]
  - Decreased appetite [Unknown]
  - Dizziness [Unknown]
  - Vomiting [Recovered/Resolved]
  - Hot flush [Unknown]
  - Nausea [Unknown]
  - Spinal compression fracture [Unknown]
  - Skin toxicity [Unknown]
  - Taste disorder [Unknown]
  - Pruritus [Unknown]
  - Dry skin [Unknown]
